FAERS Safety Report 8050608-X (Version None)
Quarter: 2012Q1

REPORT INFORMATION
  Report Type: 
  Country: None (occurrence: None)
  Receive Date: 20120117
  Receipt Date: 20120117
  Transmission Date: 20120608
  Serious: Yes (Life-Threatening)
  Sender: FDA-Public Use
  Company Number: None

PATIENT
  Sex: Female

DRUGS (3)
  1. PEGASYS [Suspect]
     Indication: HEPATITIS C
     Dosage: 180 MCG
     Route: 058
  2. INCIVEK [Concomitant]
     Indication: HEPATITIS C
     Dosage: 750 MG
     Route: 048
  3. RIBASPHERE [Concomitant]

REACTIONS (1)
  - SUICIDAL IDEATION [None]
